FAERS Safety Report 5418178-X (Version None)
Quarter: 2007Q3

REPORT INFORMATION
  Report Type: 
  Country: None (occurrence: None)
  Receive Date: 20070817
  Receipt Date: 20070703
  Transmission Date: 20080115
  Serious: Yes (Life-Threatening, Other)
  Sender: FDA-Public Use
  Company Number: US-ASTRAZENECA-2007UW15545

PATIENT
  Age: 3681 Day
  Sex: Male

DRUGS (8)
  1. ATACAND [Suspect]
     Indication: BLOOD PRESSURE DECREASED
     Route: 048
  2. AVANDIA [Suspect]
     Dates: start: 20061212, end: 20070107
  3. CONCERTA [Concomitant]
  4. PERIACTIN [Concomitant]
  5. DETROL LA [Concomitant]
  6. LORATADINE [Concomitant]
  7. ENALAPRIL MALEATE [Concomitant]
  8. DESMOPRESSIN ACETATE [Concomitant]

REACTIONS (9)
  - ANAEMIA [None]
  - BLOOD GLUCOSE FLUCTUATION [None]
  - BLOOD INSULIN INCREASED [None]
  - DRUG DISPENSING ERROR [None]
  - HUNGER [None]
  - HYPERHIDROSIS [None]
  - IRRITABILITY [None]
  - STARING [None]
  - VISUAL DISTURBANCE [None]
